FAERS Safety Report 11445617 (Version 1)
Quarter: 2015Q3

REPORT INFORMATION
  Report Type: Spontaneous
  Country: US (occurrence: None)
  Receive Date: 20150901
  Receipt Date: 20150901
  Transmission Date: 20151125
  Serious: Yes (Disabling)
  Sender: FDA-Public Use
  Company Number: None

PATIENT
  Age: 68 Year
  Sex: Female
  Weight: 83.01 kg

DRUGS (9)
  1. PREDNISONE. [Concomitant]
     Active Substance: PREDNISONE
  2. MS CONTIN [Concomitant]
     Active Substance: MORPHINE SULFATE
  3. TRAZODONE [Concomitant]
     Active Substance: TRAZODONE HYDROCHLORIDE
  4. TIZANIDINE. [Concomitant]
     Active Substance: TIZANIDINE
  5. ALENDRONATE SODIUM TABLETS 70 MG WATSON [Suspect]
     Active Substance: ALENDRONATE SODIUM
     Indication: BONE DISORDER
     Dosage: TAKEN BY MOUTH
     Route: 048
     Dates: start: 20150409, end: 20150820
  6. VENLAFAXINE [Concomitant]
     Active Substance: VENLAFAXINE HYDROCHLORIDE
  7. TEMAZEPAM. [Concomitant]
     Active Substance: TEMAZEPAM
  8. VITAMIN D3 [Concomitant]
     Active Substance: CHOLECALCIFEROL
  9. CALCIUM [Concomitant]
     Active Substance: CALCIUM

REACTIONS (11)
  - Malaise [None]
  - Condition aggravated [None]
  - Pain in extremity [None]
  - Musculoskeletal pain [None]
  - Myalgia [None]
  - Productive cough [None]
  - Nausea [None]
  - Headache [None]
  - Musculoskeletal stiffness [None]
  - Constipation [None]
  - Musculoskeletal chest pain [None]

NARRATIVE: CASE EVENT DATE: 20150521
